FAERS Safety Report 4401910-1 (Version None)
Quarter: 2004Q3

REPORT INFORMATION
  Report Type: 
  Country: None (occurrence: None)
  Receive Date: 20040720
  Receipt Date: 20040511
  Transmission Date: 20050211
  Serious: Yes (Hospitalization, Other)
  Sender: FDA-Public Use
  Company Number: DE-BRISTOL-MYERS SQUIBB COMPANY-12584595

PATIENT
  Age: 60 Year
  Sex: Female
  Weight: 130 kg

DRUGS (6)
  1. CARBOPLATIN [Suspect]
     Indication: ENDOMETRIAL CANCER
     Dosage: C1: 576 MG ON 13-NOV-2003 C2: 576 MG ON 11-DEC-2003 C3: 684 MG ON 15-JAN-2004
     Route: 042
     Dates: start: 20031113, end: 20040115
  2. CAELYX [Suspect]
     Indication: ENDOMETRIAL CANCER
     Dosage: C1: 84 MG ON 13-NOV-2003 C2: 84 MG ON 11-DEC-2003 C3: 88 MG ON 15-JAN-2004
     Route: 042
     Dates: start: 20031113, end: 20040115
  3. FORTECORTIN [Concomitant]
     Indication: PROPHYLAXIS
     Dosage: 4 TO 8 MG
     Route: 048
     Dates: start: 20031211, end: 20031214
  4. VITAMIN B6 [Concomitant]
     Route: 048
     Dates: start: 20031211
  5. BISOPROLOL FUMARATE [Concomitant]
     Indication: HYPERTENSION
     Route: 048
     Dates: start: 20031224
  6. AQUAPHOR [Concomitant]
     Indication: POLYURIA
     Route: 048
     Dates: start: 20031224

REACTIONS (3)
  - DYSPNOEA [None]
  - HEPATIC ENZYME INCREASED [None]
  - PANCREATITIS ACUTE [None]
